FAERS Safety Report 9241670 (Version 1)
Quarter: 2013Q2

REPORT INFORMATION
  Report Type: Spontaneous
  Country: CO (occurrence: CO)
  Receive Date: 20130419
  Receipt Date: 20130419
  Transmission Date: 20140414
  Serious: Yes (Other)
  Sender: FDA-Public Use
  Company Number: CO-ELI_LILLY_AND_COMPANY-CO201304003856

PATIENT
  Age: 81 Year
  Sex: Female

DRUGS (7)
  1. FORTEO [Suspect]
     Indication: OSTEOPOROSIS
     Dosage: 20MCG, OD
     Route: 058
     Dates: start: 20121119
  2. CALCIUM + VITAMIN D [Concomitant]
     Indication: VITAMIN SUPPLEMENTATION
  3. LYRICA [Concomitant]
  4. VITAMIN D3 [Concomitant]
  5. CARDIOASPIRINA [Concomitant]
  6. SYNTHROID [Concomitant]
  7. AERIUS [Concomitant]

REACTIONS (1)
  - Tongue neoplasm malignant stage unspecified [Unknown]
